FAERS Safety Report 20739505 (Version 2)
Quarter: 2022Q2

REPORT INFORMATION
  Report Type: Spontaneous
  Country: US (occurrence: US)
  Receive Date: 20220422
  Receipt Date: 20220603
  Transmission Date: 20220721
  Serious: Yes (Hospitalization)
  Sender: FDA-Public Use
  Company Number: US-PFIZER INC-202200349518

PATIENT
  Age: 3 Year
  Sex: Male
  Weight: 13.6 kg

DRUGS (4)
  1. VFEND [Suspect]
     Active Substance: VORICONAZOLE
     Indication: Cartilage-hair hypoplasia
     Dosage: 200 MG, 2X/DAY
     Route: 048
  2. VFEND [Suspect]
     Active Substance: VORICONAZOLE
     Indication: Prophylaxis
     Dosage: 40 MG/ML, 2X/DAY
     Route: 048
  3. VFEND [Suspect]
     Active Substance: VORICONAZOLE
     Dosage: 108 MG, 2X/DAY
  4. VFEND [Suspect]
     Active Substance: VORICONAZOLE
     Dosage: 140 MG, 3X/DAY (TAKE 3.5 ML (140MG) BY MOUTH 3 TIME DAILY)
     Route: 048

REACTIONS (3)
  - Pyrexia [Recovering/Resolving]
  - Off label use [Unknown]
  - Product dispensing error [Unknown]
